FAERS Safety Report 22018051 (Version 1)
Quarter: 2023Q1

REPORT INFORMATION
  Report Type: Spontaneous
  Country: FR (occurrence: FR)
  Receive Date: 20230221
  Receipt Date: 20230221
  Transmission Date: 20230417
  Serious: Yes (Other)
  Sender: FDA-Public Use
  Company Number: None

PATIENT
  Sex: Female

DRUGS (3)
  1. DALBAVANCIN HYDROCHLORIDE [Suspect]
     Active Substance: DALBAVANCIN HYDROCHLORIDE
     Indication: Device related infection
     Dosage: 1000 MG, SINGLE
     Route: 042
     Dates: start: 20221104, end: 20221104
  2. DALBAVANCIN HYDROCHLORIDE [Suspect]
     Active Substance: DALBAVANCIN HYDROCHLORIDE
     Dosage: 1000 MG, SINGLE
     Route: 042
     Dates: start: 20221020, end: 20221020
  3. DALBAVANCIN HYDROCHLORIDE [Suspect]
     Active Substance: DALBAVANCIN HYDROCHLORIDE
     Dosage: 1500 MG, SINGLE
     Route: 042
     Dates: start: 20221006, end: 20221006

REACTIONS (3)
  - Cholestasis [Recovering/Resolving]
  - Gamma-glutamyltransferase increased [Recovering/Resolving]
  - Off label use [Unknown]

NARRATIVE: CASE EVENT DATE: 20221122
